FAERS Safety Report 8269276-7 (Version None)
Quarter: 2012Q2

REPORT INFORMATION
  Report Type: 
  Country: None (occurrence: None)
  Receive Date: 20120409
  Receipt Date: 20120404
  Transmission Date: 20120825
  Serious: Yes (Other)
  Sender: FDA-Public Use
  Company Number: GB-ROCHE-1056580

PATIENT
  Age: 47 Year
  Sex: Female
  Weight: 92 kg

DRUGS (5)
  1. TOCILIZUMAB [Suspect]
     Indication: RHEUMATOID ARTHRITIS
     Route: 042
     Dates: start: 20110706, end: 20111109
  2. CYCLOSPORINE [Concomitant]
     Route: 048
     Dates: start: 20100125
  3. ZOLEDRONIC ACID [Concomitant]
     Route: 042
     Dates: start: 20110928
  4. PREDNISOLONE [Concomitant]
     Route: 048
     Dates: start: 20040621
  5. METHOTREXATE [Concomitant]
     Route: 048
     Dates: start: 20100621

REACTIONS (2)
  - TENOSYNOVITIS [None]
  - ACNE [None]
